FAERS Safety Report 24457160 (Version 1)
Quarter: 2024Q4

REPORT INFORMATION
  Report Type: Spontaneous
  Country: CN (occurrence: CN)
  Receive Date: 20241018
  Receipt Date: 20241018
  Transmission Date: 20250115
  Serious: Yes (Other)
  Sender: TAKEDA
  Company Number: CN-TAKEDA-2024TUS100919

PATIENT
  Age: 5 Year
  Sex: Male
  Weight: 15 kg

DRUGS (5)
  1. ALBUMIN HUMAN [Suspect]
     Active Substance: ALBUMIN HUMAN
     Indication: Chemotherapy
     Dosage: 2 GRAM, QD
     Route: 041
     Dates: start: 20240929, end: 20240929
  2. MORPHINE HYDROCHLORIDE [Suspect]
     Active Substance: MORPHINE HYDROCHLORIDE
     Indication: Analgesic therapy
     Dosage: 14 MILLIGRAM, QD
     Route: 041
     Dates: start: 20240929, end: 20240929
  3. DINUTUXIMAB BETA [Suspect]
     Active Substance: DINUTUXIMAB BETA
     Indication: Chemotherapy
     Dosage: 13.50 MILLILITER, QD
     Route: 041
     Dates: start: 20240929, end: 20240929
  4. SODIUM CHLORIDE [Concomitant]
     Active Substance: SODIUM CHLORIDE
     Dosage: 46 MILLILITER, QD
     Route: 041
     Dates: start: 20240929, end: 20240929
  5. SODIUM CHLORIDE [Concomitant]
     Active Substance: SODIUM CHLORIDE
     Dosage: 200 MILLILITER, QD
     Route: 041
     Dates: start: 20240929, end: 20240929

REACTIONS (1)
  - Anaphylactic shock [Recovering/Resolving]

NARRATIVE: CASE EVENT DATE: 20240929
